FAERS Safety Report 5262383-2 (Version None)
Quarter: 2007Q1

REPORT INFORMATION
  Report Type: 
  Country: None (occurrence: None)
  Receive Date: 20070309
  Receipt Date: 20070309
  Transmission Date: 20070707
  Serious: No
  Sender: FDA-Public Use
  Company Number: None

PATIENT
  Age: 37 Year
  Sex: Female
  Weight: 84 kg

DRUGS (1)
  1. RISPERIDONE [Suspect]
     Dosage: 6 MG DAILY PO
     Route: 048

REACTIONS (2)
  - AMENORRHOEA [None]
  - BREAST DISCHARGE [None]
